FAERS Safety Report 4571163-2 (Version None)
Quarter: 2005Q1

REPORT INFORMATION
  Report Type: 
  Country: None (occurrence: None)
  Receive Date: 20050202
  Receipt Date: 20050112
  Transmission Date: 20050727
  Serious: Yes (Disabling)
  Sender: FDA-Public Use
  Company Number: US_0501110075

PATIENT
  Age: 64 Year
  Sex: Female

DRUGS (1)
  1. CEFACLOR [Suspect]
     Dates: start: 19880901, end: 19880901

REACTIONS (2)
  - TOXIC EPIDERMAL NECROLYSIS [None]
  - VISUAL ACUITY REDUCED [None]
